FAERS Safety Report 18210848 (Version 1)
Quarter: 2020Q3

REPORT INFORMATION
  Report Type: Spontaneous
  Country: CA (occurrence: CA)
  Receive Date: 20200830
  Receipt Date: 20200830
  Transmission Date: 20201103
  Serious: Yes (Disabling)
  Sender: FDA-Public Use
  Company Number: CA-TEVA-2020-CA-1819042

PATIENT
  Age: 13 Year
  Sex: Male
  Weight: 43 kg

DRUGS (27)
  1. MORPHINE [Concomitant]
     Active Substance: MORPHINE
  2. ACETAMINOPHEN. [Concomitant]
     Active Substance: ACETAMINOPHEN
  3. FILGRASTIM [Concomitant]
     Active Substance: FILGRASTIM
  4. FUROSEMIDE. [Concomitant]
     Active Substance: FUROSEMIDE
  5. HYDROXYZINE [Concomitant]
     Active Substance: HYDROXYZINE HYDROCHLORIDE
  6. METHOTREXATE. [Concomitant]
     Active Substance: METHOTREXATE
  7. POLYETHYLENE GLYCOL [Concomitant]
     Active Substance: POLYETHYLENE GLYCOLS
  8. VANCOMYCIN [Concomitant]
     Active Substance: VANCOMYCIN
  9. HEPARIN CALCIUM [Concomitant]
     Active Substance: HEPARIN CALCIUM
  10. HYDROMORPHONE [Concomitant]
     Active Substance: HYDROMORPHONE
  11. LORAZEPAM. [Concomitant]
     Active Substance: LORAZEPAM
  12. TOBRAMYCIN. [Concomitant]
     Active Substance: TOBRAMYCIN
  13. DEXAMETHASONE. [Concomitant]
     Active Substance: DEXAMETHASONE
  14. DIPHENHYDRAMINE. [Concomitant]
     Active Substance: DIPHENHYDRAMINE
  15. DOCUSATE SODIUM. [Concomitant]
     Active Substance: DOCUSATE SODIUM
  16. DOXORUBICIN HYDROCHLORIDE INJECTION [Concomitant]
     Active Substance: DOXORUBICIN HYDROCHLORIDE
  17. DIMENHYDRINATE. [Concomitant]
     Active Substance: DIMENHYDRINATE
  18. METOCLOPRAMIDE. [Concomitant]
     Active Substance: METOCLOPRAMIDE
  19. PIPERACILLIN ANDTAZOBACTAM FOR INJECTION [Concomitant]
  20. RANITIDINE. [Concomitant]
     Active Substance: RANITIDINE
  21. EMEND [Concomitant]
     Active Substance: APREPITANT
  22. CISPLATIN INJECTION [Suspect]
     Active Substance: CISPLATIN
     Indication: OSTEOSARCOMA
     Dosage: 80 MILLIGRAM DAILY;
     Route: 042
  23. LANSOPRAZOLE. [Concomitant]
     Active Substance: LANSOPRAZOLE
  24. MAGNESIUM SULFATE. [Concomitant]
     Active Substance: MAGNESIUM SULFATE
  25. OLANZAPINE. [Concomitant]
     Active Substance: OLANZAPINE
  26. ONDANSETRON [Concomitant]
     Active Substance: ONDANSETRON
  27. TRIMETHOPRIM?SULFAMETHOXAZOLE [Concomitant]
     Active Substance: SULFAMETHOXAZOLE\TRIMETHOPRIM

REACTIONS (2)
  - Condition aggravated [Unknown]
  - Ototoxicity [Unknown]
